FAERS Safety Report 4964663-4 (Version None)
Quarter: 2006Q2

REPORT INFORMATION
  Report Type: 
  Country: None (occurrence: None)
  Receive Date: 20060406
  Receipt Date: 20050426
  Transmission Date: 20061013
  Serious: Yes (Hospitalization, Disabling)
  Sender: FDA-Public Use
  Company Number: US-MERCK-0504USA04857

PATIENT
  Age: 47 Year
  Sex: Female
  Weight: 50 kg

DRUGS (4)
  1. VIOXX [Suspect]
     Indication: BACK INJURY
     Route: 048
     Dates: start: 20000301, end: 20011021
  2. VIOXX [Suspect]
     Route: 048
     Dates: start: 20030623, end: 20040726
  3. VIOXX [Suspect]
     Route: 048
     Dates: start: 20000301, end: 20011021
  4. VIOXX [Suspect]
     Route: 048
     Dates: start: 20030623, end: 20040726

REACTIONS (2)
  - MYOCARDIAL INFARCTION [None]
  - PAIN [None]
